FAERS Safety Report 20236959 (Version 1)
Quarter: 2021Q4

REPORT INFORMATION
  Report Type: Spontaneous
  Country: CZ (occurrence: CZ)
  Receive Date: 20211228
  Receipt Date: 20211228
  Transmission Date: 20220303
  Serious: Yes (Death, Life-Threatening, Hospitalization, Other)
  Sender: FDA-Public Use
  Company Number: CZ-MACLEODS PHARMACEUTICALS US LTD-MAC2021033854

PATIENT

DRUGS (9)
  1. ACYCLOVIR [Suspect]
     Active Substance: ACYCLOVIR
     Indication: Herpes zoster infection neurological
     Dosage: 750 MILLIGRAM, TID, POWDER FOR SOLUTION FOR INFUSION, AMPOULE
     Route: 051
  2. ACYCLOVIR [Suspect]
     Active Substance: ACYCLOVIR
     Indication: Rash
  3. METOPROLOL [Concomitant]
     Active Substance: METOPROLOL
     Indication: Hypertension
     Dosage: 25 MILLIGRAM, QD
     Route: 065
  4. PANTOPRAZOLE [Concomitant]
     Active Substance: PANTOPRAZOLE
     Indication: Product used for unknown indication
     Dosage: 40 MILLIGRAM, QD
     Route: 065
  5. VITAMIN B12 [Concomitant]
     Active Substance: CYANOCOBALAMIN
     Indication: Product used for unknown indication
     Dosage: UNK
     Route: 065
  6. FOLIC ACID [Concomitant]
     Active Substance: FOLIC ACID
     Indication: Product used for unknown indication
     Dosage: UNK
     Route: 065
  7. FUROSEMIDE [Concomitant]
     Active Substance: FUROSEMIDE
     Indication: Myocardial ischaemia
     Dosage: 20 MILLIGRAM, QD
     Route: 065
  8. QUETIAPINE [Concomitant]
     Active Substance: QUETIAPINE
     Indication: Product used for unknown indication
     Dosage: 50 MILLIGRAM, QD
     Route: 065
  9. CARBIDOPA\LEVODOPA [Concomitant]
     Active Substance: CARBIDOPA\LEVODOPA
     Indication: Product used for unknown indication
     Dosage: UNK, TID
     Route: 065

REACTIONS (11)
  - Pneumonia [Fatal]
  - Clostridium difficile infection [Fatal]
  - Neurotoxicity [Recovered/Resolved]
  - Unresponsive to stimuli [Recovered/Resolved]
  - Renal impairment [Recovering/Resolving]
  - Loss of consciousness [Recovered/Resolved]
  - Nervous system disorder [Recovered/Resolved]
  - Mental status changes [Recovered/Resolved]
  - Hyperkalaemia [Recovering/Resolving]
  - Acute kidney injury [Recovering/Resolving]
  - Nephropathy toxic [Recovering/Resolving]
